FAERS Safety Report 10791534 (Version 2)
Quarter: 2015Q1

REPORT INFORMATION
  Report Type: Report from Study
  Country: CH (occurrence: CH)
  Receive Date: 20150213
  Receipt Date: 20150216
  Transmission Date: 20150721
  Serious: Yes (Hospitalization)
  Sender: FDA-Public Use
  Company Number: CH-GLAXOSMITHKLINE INC.-CH2015GSK016732

PATIENT
  Sex: Male

DRUGS (4)
  1. DABRAFENIB [Suspect]
     Active Substance: DABRAFENIB
     Indication: METASTATIC MALIGNANT MELANOMA
     Dosage: 50 MG, BID
     Dates: start: 20150112, end: 20150119
  2. DABRAFENIB [Suspect]
     Active Substance: DABRAFENIB
     Dosage: 75 UNK, UNK
     Dates: start: 20150120, end: 20150202
  3. DABRAFENIB [Suspect]
     Active Substance: DABRAFENIB
     Dosage: 50 MG, QD
     Dates: start: 20150203
  4. TRAMETINIB [Suspect]
     Active Substance: TRAMETINIB
     Indication: METASTATIC MALIGNANT MELANOMA
     Dosage: 2 MG, QD
     Dates: start: 20150112

REACTIONS (1)
  - Infection [Recovered/Resolved]

NARRATIVE: CASE EVENT DATE: 20150202
